FAERS Safety Report 17092843 (Version 2)
Quarter: 2020Q1

REPORT INFORMATION
  Report Type: Spontaneous
  Country: US (occurrence: US)
  Receive Date: 20191129
  Receipt Date: 20200108
  Transmission Date: 20200409
  Serious: Yes (Hospitalization, Other)
  Sender: FDA-Public Use
  Company Number: US-PFIZER INC-2019514267

PATIENT
  Age: 72 Year
  Sex: Female
  Weight: 58.96 kg

DRUGS (3)
  1. XELJANZ XR [Suspect]
     Active Substance: TOFACITINIB CITRATE
     Indication: RHEUMATOID ARTHRITIS
     Dosage: 11 MG, 2X/DAY
     Dates: start: 2017, end: 20191011
  2. TRAMADOL. [Concomitant]
     Active Substance: TRAMADOL
     Dosage: UNK
     Dates: start: 2014
  3. TIZANIDINE. [Concomitant]
     Active Substance: TIZANIDINE
     Dosage: UNK
     Dates: start: 2014

REACTIONS (3)
  - Off label use [Unknown]
  - Cerebrovascular accident [Recovered/Resolved]
  - Thrombosis [Unknown]

NARRATIVE: CASE EVENT DATE: 2017
